FAERS Safety Report 13961359 (Version 1)
Quarter: 2017Q3

REPORT INFORMATION
  Report Type: Spontaneous
  Country: US (occurrence: None)
  Receive Date: 20170912
  Receipt Date: 20170912
  Transmission Date: 20171128
  Serious: No
  Sender: FDA-Public Use
  Company Number: None

PATIENT
  Age: 70 Year
  Sex: Female
  Weight: 62.6 kg

DRUGS (11)
  1. CENTRUM SILVER MULTI - ADULTS 50+ [Concomitant]
  2. GARLIC. [Concomitant]
     Active Substance: GARLIC
  3. NIACIN. [Concomitant]
     Active Substance: NIACIN
  4. VITAMIN D3 [Concomitant]
     Active Substance: CHOLECALCIFEROL
  5. ESTROVEN FOR MENOPAUSE RELIEF [Concomitant]
  6. PROLIA [Suspect]
     Active Substance: DENOSUMAB
     Indication: OSTEOPOROSIS
     Dates: start: 20170823
  7. RAMIPRIL. [Concomitant]
     Active Substance: RAMIPRIL
  8. VITAMIN C [Concomitant]
     Active Substance: ASCORBIC ACID
  9. FISH OIL [Concomitant]
     Active Substance: FISH OIL
  10. MAGNESIUM [Concomitant]
     Active Substance: MAGNESIUM
  11. GLUCOSAMINE CHONDROITIN [Concomitant]
     Active Substance: CHONDROITIN SULFATE (BOVINE)\GLUCOSAMINE HYDROCHLORIDE

REACTIONS (7)
  - Pruritus [None]
  - Chills [None]
  - Abdominal discomfort [None]
  - Fatigue [None]
  - Asthenia [None]
  - Paraesthesia [None]
  - Nasal irrigation [None]

NARRATIVE: CASE EVENT DATE: 20170827
